FAERS Safety Report 5565055-X (Version None)
Quarter: 2007Q4

REPORT INFORMATION
  Report Type: 
  Country: None (occurrence: None)
  Receive Date: 20071212
  Receipt Date: 20071130
  Transmission Date: 20080405
  Serious: Yes (Other)
  Sender: FDA-Public Use
  Company Number: S07-USA-06143-01

PATIENT
  Age: 7 Year
  Sex: Male

DRUGS (9)
  1. CELEXA [Suspect]
     Indication: ANXIETY
     Dosage: 15 MG QD PO
     Route: 048
     Dates: start: 20071001, end: 20071113
  2. CELEXA [Suspect]
     Indication: OBSESSIVE-COMPULSIVE DISORDER
     Dosage: 15 MG QD PO
     Route: 048
     Dates: start: 20071001, end: 20071113
  3. CELEXA [Suspect]
     Indication: ANXIETY
     Dosage: 7.5 MG QD PO
     Route: 048
     Dates: start: 20070601, end: 20071001
  4. CELEXA [Suspect]
     Indication: OBSESSIVE-COMPULSIVE DISORDER
     Dosage: 7.5 MG QD PO
     Route: 048
     Dates: start: 20070601, end: 20071001
  5. ADVAIR (FLUTICASONE) [Concomitant]
  6. SINGULAIR [Concomitant]
  7. ALBUTEROL [Concomitant]
  8. CLARINEX [Concomitant]
  9. PREVACID [Concomitant]

REACTIONS (2)
  - INTENTIONAL SELF-INJURY [None]
  - VIOLENCE-RELATED SYMPTOM [None]
